FAERS Safety Report 13190328 (Version 1)
Quarter: 2017Q1

REPORT INFORMATION
  Report Type: Report from Study
  Country: DE (occurrence: DE)
  Receive Date: 20170206
  Receipt Date: 20170206
  Transmission Date: 20170428
  Serious: No
  Sender: FDA-Public Use
  Company Number: DE-JNJFOC-20170204828

PATIENT
  Age: 64 Year
  Sex: Male

DRUGS (1)
  1. STELARA [Suspect]
     Active Substance: USTEKINUMAB
     Indication: PSORIASIS
     Route: 058
     Dates: start: 20160926

REACTIONS (1)
  - Seborrhoeic dermatitis [Not Recovered/Not Resolved]

NARRATIVE: CASE EVENT DATE: 20170112
